FAERS Safety Report 11521930 (Version 1)
Quarter: 2015Q3

REPORT INFORMATION
  Report Type: Spontaneous
  Country: US (occurrence: US)
  Receive Date: 20150903
  Receipt Date: 20150903
  Transmission Date: 20151125
  Serious: No
  Sender: FDA-Public Use
  Company Number: US-ELI_LILLY_AND_COMPANY-US201212008383

PATIENT
  Age: 66 Year
  Sex: Female

DRUGS (18)
  1. PROVIGIL [Concomitant]
     Active Substance: MODAFINIL
     Dosage: 100 MG, QD
     Dates: end: 20121218
  2. LUNESTA [Concomitant]
     Active Substance: ESZOPICLONE
     Dosage: 3 MG, EACH EVENING
  3. HYDROCHLOROTHIAZIDE. [Concomitant]
     Active Substance: HYDROCHLOROTHIAZIDE
     Dosage: 12.5 MG, QD
  4. BACLOFEN. [Concomitant]
     Active Substance: BACLOFEN
     Dosage: 10 MG, BID
  5. LECITHIN [Concomitant]
     Active Substance: LECITHIN
     Indication: BLOOD CHOLESTEROL
     Dosage: 4800 MG, QD
  6. OMEGA 3 [Concomitant]
     Active Substance: OMEGA-3 FATTY ACIDS
     Dosage: 4000 MG, QD
  7. PROGESTERONE. [Concomitant]
     Active Substance: PROGESTERONE
  8. LOSARTAN. [Concomitant]
     Active Substance: LOSARTAN
     Dosage: 100 MG, QD
  9. SYNTHROID [Concomitant]
     Active Substance: LEVOTHYROXINE SODIUM
     Dosage: 50 UG, QD
  10. CLARINEX [Concomitant]
     Active Substance: DESLORATADINE
     Dosage: 5 MG, QD
  11. METANX [Concomitant]
     Active Substance: LEVOMEFOLATE CALCIUM\METHYLCOBALAMIN\PYRIDOXAL PHOSPHATE ANHYDROUS
  12. GLUCOSAMINE + CHONDROITIN [Concomitant]
  13. CYMBALTA [Suspect]
     Active Substance: DULOXETINE HYDROCHLORIDE
     Indication: FIBROMYALGIA
     Dosage: 30 MG, QD
     Dates: start: 20121218, end: 20121218
  14. GABAPENTIN. [Concomitant]
     Active Substance: GABAPENTIN
     Dosage: 200 MG, TID
  15. COENZYME Q10 [Concomitant]
     Active Substance: UBIDECARENONE
     Dosage: 100 MG, BID
  16. ESTRADIOL TRANSDERMAL SYSTEM [Concomitant]
     Active Substance: ESTRADIOL
  17. GARLIC. [Concomitant]
     Active Substance: GARLIC
     Dosage: 1000 MG, QD
  18. CALCIUM [Concomitant]
     Active Substance: CALCIUM

REACTIONS (10)
  - Terminal insomnia [Recovered/Resolved]
  - Dry mouth [Recovered/Resolved]
  - Eye pain [Recovered/Resolved]
  - Decreased appetite [Recovered/Resolved]
  - Headache [Recovered/Resolved]
  - Pollakiuria [Recovered/Resolved]
  - Oral mucosal blistering [Recovering/Resolving]
  - Poor quality sleep [Recovered/Resolved]
  - Gingival blister [Recovering/Resolving]
  - Gingival swelling [Recovered/Resolved]

NARRATIVE: CASE EVENT DATE: 20121219
